FAERS Safety Report 8313318-7 (Version None)
Quarter: 2012Q2

REPORT INFORMATION
  Report Type: 
  Country: None (occurrence: None)
  Receive Date: 20120426
  Receipt Date: 20120412
  Transmission Date: 20120825
  Serious: Yes (Other)
  Sender: FDA-Public Use
  Company Number: PHHY2012JP034614

PATIENT
  Sex: Female
  Weight: 103 kg

DRUGS (17)
  1. EXJADE [Suspect]
     Dosage: 500 MG, DAILY
     Route: 048
     Dates: start: 20111110, end: 20111208
  2. AMARYL [Concomitant]
     Indication: TYPE 2 DIABETES MELLITUS
     Dosage: 6 MG
     Route: 048
     Dates: start: 20100226
  3. RED BLOOD CELLS, CONCENTRATED [Concomitant]
     Dosage: 4 U, EVERY 2 WEEKS
     Dates: start: 20100909, end: 20101007
  4. EXJADE [Suspect]
     Indication: MYELODYSPLASTIC SYNDROME
     Dosage: 1000 MG, DAILY
     Route: 048
     Dates: start: 20100226, end: 20100325
  5. ZOLPIDEM [Concomitant]
     Dosage: 10 MG
     Route: 048
     Dates: start: 20100226
  6. AMARYL [Concomitant]
     Dosage: 6 MG
     Route: 048
  7. METFORMIN HCL [Concomitant]
     Indication: TYPE 2 DIABETES MELLITUS
     Dosage: 500 MG
     Route: 048
     Dates: start: 20110226
  8. ADALAT CC [Concomitant]
     Dosage: 20 MG, UNK
     Route: 048
     Dates: start: 20111201
  9. METFORMIN HCL [Concomitant]
     Indication: TYPE 2 DIABETES MELLITUS
     Dosage: 500 MG, UNK
     Route: 048
     Dates: start: 20110623
  10. NEORAL [Concomitant]
     Indication: MYELODYSPLASTIC SYNDROME
     Dosage: 200 MG, UNK
     Route: 048
     Dates: start: 20110728
  11. RED BLOOD CELLS, CONCENTRATED [Concomitant]
     Dosage: 2 U, EVERY 2 WEEKS
     Dates: start: 20110401, end: 20110825
  12. EXJADE [Suspect]
     Dosage: 1500 MG, DAILY
     Route: 048
     Dates: start: 20100701, end: 20110407
  13. DESFERAL [Concomitant]
     Indication: IRON OVERLOAD
     Dosage: 1000 MG, UNK
     Route: 030
     Dates: start: 20080611, end: 20110825
  14. EXJADE [Suspect]
     Dosage: 1000 MG, DAILY
     Route: 048
     Dates: start: 20111208
  15. DIOVAN [Concomitant]
     Dosage: 80 MG, UNK
     Route: 048
     Dates: start: 20110901
  16. ZOLPIDEM [Concomitant]
     Dosage: 10 MG
     Route: 048
  17. RED BLOOD CELLS, CONCENTRATED [Concomitant]
     Dosage: 2 U, EVERY 2 WEEKS
     Dates: start: 20100212, end: 20100909

REACTIONS (1)
  - HAEMOLYTIC ANAEMIA [None]
